FAERS Safety Report 9996611 (Version 1)
Quarter: 2014Q1

REPORT INFORMATION
  Report Type: Spontaneous
  Country: US (occurrence: None)
  Receive Date: 20140304
  Receipt Date: 20140304
  Transmission Date: 20141002
  Serious: Yes (Hospitalization, Other)
  Sender: FDA-Public Use
  Company Number: RB-56026-2013

PATIENT
  Sex: Male

DRUGS (2)
  1. SUBUTEX [Suspect]
     Indication: DRUG DEPENDENCE
     Route: 064
     Dates: start: 200809, end: 20090613
  2. NICOTINE [Suspect]
     Indication: NICOTINE DEPENDENCE
     Dosage: 5-10 CIGARETTES DAILY, TRANSPLACENTAL
     Route: 064
     Dates: start: 200809, end: 20090613

REACTIONS (5)
  - Foetal exposure during pregnancy [None]
  - Drug withdrawal syndrome [None]
  - Infantile spitting up [None]
  - Crying [None]
  - Weight decrease neonatal [None]
